FAERS Safety Report 7809179-2 (Version None)
Quarter: 2011Q4

REPORT INFORMATION
  Report Type: 
  Country: None (occurrence: None)
  Receive Date: 20111006
  Receipt Date: 20110914
  Transmission Date: 20120403
  Serious: No
  Sender: FDA-Public Use
  Company Number: 201111278

PATIENT
  Age: 24 Year
  Sex: Male

DRUGS (1)
  1. BACLOFEN [Suspect]
     Indication: MUSCLE SPASTICITY
     Dosage: UNK MCG, DAILY, INTRATHECAL

REACTIONS (3)
  - HYPERHIDROSIS [None]
  - MUSCLE SPASTICITY [None]
  - CALCULUS URINARY [None]
